FAERS Safety Report 4310969-1 (Version None)
Quarter: 2004Q1

REPORT INFORMATION
  Report Type: 
  Country: None (occurrence: None)
  Receive Date: 20040302
  Receipt Date: 20040302
  Transmission Date: 20041129
  Serious: Yes (Hospitalization)
  Sender: FDA-Public Use
  Company Number: None

PATIENT
  Age: 29 Year
  Sex: Female
  Weight: 44 kg

DRUGS (4)
  1. FELBATOL [Suspect]
     Indication: EPILEPSY
     Dosage: 720 MG 3 TIMES ORAL
     Route: 048
  2. VALPROIC ACID [Concomitant]
  3. MIACALCIN [Concomitant]
  4. ORAL CONRACEPTIVE [Concomitant]

REACTIONS (2)
  - RED BLOOD CELL COUNT DECREASED [None]
  - WHITE BLOOD CELL COUNT DECREASED [None]
